FAERS Safety Report 12440551 (Version 1)
Quarter: 2016Q2

REPORT INFORMATION
  Report Type: Spontaneous
  Country: None (occurrence: US)
  Receive Date: 20160606
  Receipt Date: 20160606
  Transmission Date: 20160815
  Serious: No
  Sender: FDA-Public Use
  Company Number: US-MATRIXX INITIATIVES, INC.-1053409

PATIENT
  Age: 70 Year
  Sex: Male
  Weight: 113.64 kg

DRUGS (5)
  1. MELOXICAM. [Concomitant]
     Active Substance: MELOXICAM
  2. TAMSULOSIN HYDROCHLORIDE. [Concomitant]
     Active Substance: TAMSULOSIN HYDROCHLORIDE
  3. ZICAM COLD REMEDY SWABS [Suspect]
     Active Substance: ZINC GLUCONATE
     Indication: NASOPHARYNGITIS
     Route: 045
  4. MULTIVITAMIN [Concomitant]
     Active Substance: VITAMINS
  5. CHLORTHALIDONE. [Concomitant]
     Active Substance: CHLORTHALIDONE

REACTIONS (2)
  - Anosmia [Not Recovered/Not Resolved]
  - Ageusia [Not Recovered/Not Resolved]
